FAERS Safety Report 6317808-8 (Version None)
Quarter: 2009Q3

REPORT INFORMATION
  Report Type: 
  Country: None (occurrence: None)
  Receive Date: 20090820
  Receipt Date: 20090820
  Transmission Date: 20100115
  Serious: Yes (Other)
  Sender: FDA-Public Use
  Company Number: None

PATIENT
  Age: 55 Year
  Sex: Male
  Weight: 70.3075 kg

DRUGS (1)
  1. AVELOX [Suspect]
     Indication: PNEUMONIA
     Dosage: 1 PILL 1/DAY PO
     Route: 048
     Dates: start: 20090812, end: 20090816

REACTIONS (2)
  - MOBILITY DECREASED [None]
  - TENDON PAIN [None]
